FAERS Safety Report 10370523 (Version 1)
Quarter: 2014Q3

REPORT INFORMATION
  Report Type: Spontaneous
  Country: US (occurrence: US)
  Receive Date: 20140808
  Receipt Date: 20140808
  Transmission Date: 20150326
  Serious: Yes (Hospitalization, Other)
  Sender: FDA-Public Use
  Company Number: US-SA-2014SA104322

PATIENT
  Age: 77 Year
  Sex: Female

DRUGS (1)
  1. PLAVIX [Suspect]
     Active Substance: CLOPIDOGREL BISULFATE
     Indication: CEREBROVASCULAR ACCIDENT
     Route: 065
     Dates: start: 2005

REACTIONS (7)
  - Cerebral haemorrhage [Unknown]
  - Brain midline shift [Unknown]
  - Fall [Unknown]
  - Hypertension [Unknown]
  - Abnormal behaviour [Unknown]
  - Craniocerebral injury [Unknown]
  - Cerebrovascular accident [Unknown]

NARRATIVE: CASE EVENT DATE: 20140719
